FAERS Safety Report 6750773-8 (Version None)
Quarter: 2010Q2

REPORT INFORMATION
  Report Type: 
  Country: None (occurrence: None)
  Receive Date: 20100602
  Receipt Date: 20100520
  Transmission Date: 20101027
  Serious: No
  Sender: FDA-Public Use
  Company Number: 2009BI025005

PATIENT
  Age: 55 Year
  Sex: Female
  Weight: 86 kg

DRUGS (1)
  1. TYSABRI [Suspect]
     Indication: MULTIPLE SCLEROSIS
     Route: 042
     Dates: start: 20071031

REACTIONS (3)
  - COLITIS MICROSCOPIC [None]
  - IRRITABLE BOWEL SYNDROME [None]
  - STRESS [None]
